FAERS Safety Report 5921067-5 (Version None)
Quarter: 2008Q4

REPORT INFORMATION
  Report Type: 
  Country: None (occurrence: None)
  Receive Date: 20081016
  Receipt Date: 20081010
  Transmission Date: 20090506
  Serious: Yes (Disabling)
  Sender: FDA-Public Use
  Company Number: US-WYE-H05917008

PATIENT
  Sex: Female
  Weight: 111.5 kg

DRUGS (6)
  1. TORISEL [Suspect]
     Dates: start: 20080509, end: 20080715
  2. TRIAMTERENE AND HYDROCHLOROTHIAZIDE [Concomitant]
     Indication: HYPERTENSION
     Dosage: ^37.5/25 DAILY^
  3. GEMFIBROZIL [Concomitant]
     Indication: HYPERLIPIDAEMIA
     Dosage: NOT PROVIDED
  4. ATENOLOL [Concomitant]
     Indication: HYPERTENSION
  5. FLUOXETINE [Concomitant]
     Indication: DEPRESSION
  6. LEVOTHYROXINE SODIUM [Concomitant]
     Indication: HYPOTHYROIDISM

REACTIONS (1)
  - LUNG DISORDER [None]
